FAERS Safety Report 5040676-1 (Version None)
Quarter: 2006Q2

REPORT INFORMATION
  Report Type: 
  Country: None (occurrence: None)
  Receive Date: 20060629
  Receipt Date: 20060629
  Transmission Date: 20061013
  Serious: No
  Sender: FDA-Public Use
  Company Number: None

PATIENT
  Sex: Male
  Weight: 63.5036 kg

DRUGS (1)
  1. AMIFOSTINE [Suspect]
     Indication: PROPHYLAXIS
     Dosage: 500 MG /2.9 ML DAILY PRE-RT SUBCUTAN
     Route: 058
     Dates: start: 20060201, end: 20060308

REACTIONS (2)
  - PRURITUS [None]
  - RASH MORBILLIFORM [None]
